FAERS Safety Report 8922481 (Version 1)
Quarter: 2012Q4

REPORT INFORMATION
  Report Type: 
  Country: SE (occurrence: SE)
  Receive Date: 20121123
  Receipt Date: 20121123
  Transmission Date: 20130627
  Serious: Yes (Hospitalization)
  Sender: FDA-Public Use
  Company Number: SE-PFIZER INC-2012290698

PATIENT
  Age: 76 Year
  Sex: Male
  Weight: 98 kg

DRUGS (8)
  1. GENOTROPIN [Suspect]
     Dosage: 0.2 mg, 1x/day,7 injections/week
     Route: 058
     Dates: start: 20001128
  2. LOMIR SRO [Concomitant]
     Indication: ESSENTIAL HYPERTENSION
     Dosage: UNK
     Dates: start: 19910701
  3. COZAAR [Concomitant]
     Indication: ESSENTIAL HYPERTENSION
     Dosage: UNK
     Dates: start: 19960701
  4. LASIX [Concomitant]
     Indication: ESSENTIAL HYPERTENSION
     Dosage: UNK
     Dates: start: 19960701
  5. LEVOTHYROXINE [Concomitant]
     Indication: TSH DECREASE
     Dosage: UNK
     Dates: start: 19961215
  6. IMOVANE [Concomitant]
     Indication: INSOMNIA
     Dosage: UNK
     Dates: start: 19961215
  7. TESTOSTERONE [Concomitant]
     Indication: TSH DECREASE
     Dosage: UNK
     Dates: start: 19961215
  8. PREPULSID [Concomitant]
     Indication: GASTROOESOPHAGEAL REFLUX DISEASE
     Dosage: UNK
     Dates: start: 19970115

REACTIONS (1)
  - Arthropathy [Unknown]
